FAERS Safety Report 4590794-7 (Version None)
Quarter: 2005Q1

REPORT INFORMATION
  Report Type: 
  Country: None (occurrence: None)
  Receive Date: 20050224
  Receipt Date: 20050216
  Transmission Date: 20050727
  Serious: Yes (Hospitalization, Other)
  Sender: FDA-Public Use
  Company Number: US-MERCK-0502USA02202

PATIENT
  Age: 46 Year
  Sex: Female

DRUGS (2)
  1. VYTORIN [Suspect]
     Indication: DYSLIPIDAEMIA
     Route: 048
  2. SYNTHROID [Concomitant]
     Route: 065

REACTIONS (6)
  - ABDOMINAL DISCOMFORT [None]
  - ASTHENIA [None]
  - DRUG ERUPTION [None]
  - PAIN IN EXTREMITY [None]
  - PALPITATIONS [None]
  - SKIN BURNING SENSATION [None]
